FAERS Safety Report 10654128 (Version 1)
Quarter: 2014Q4

REPORT INFORMATION
  Report Type: Spontaneous
  Country: US (occurrence: None)
  Receive Date: 20141215
  Receipt Date: 20141215
  Transmission Date: 20150529
  Serious: No
  Sender: FDA-Public Use
  Company Number: None

PATIENT
  Age: 44 Year
  Sex: Female
  Weight: 65.77 kg

DRUGS (1)
  1. DIAL ANTIBACTERIAL [Suspect]
     Active Substance: TRICLOCARBAN
     Indication: THERAPEUTIC SKIN CARE TOPICAL
     Dates: start: 20141201, end: 20141212

REACTIONS (3)
  - Rash pruritic [None]
  - Application site rash [None]
  - Rash erythematous [None]

NARRATIVE: CASE EVENT DATE: 20141212
